FAERS Safety Report 6407179-0 (Version None)
Quarter: 2009Q4

REPORT INFORMATION
  Report Type: 
  Country: None (occurrence: None)
  Receive Date: 20091020
  Receipt Date: 20091013
  Transmission Date: 20100525
  Serious: Yes (Death, Life-Threatening, Hospitalization, Other)
  Sender: FDA-Public Use
  Company Number: AU-CELGENEUS-008-21880-09061290

PATIENT
  Sex: Female
  Weight: 65 kg

DRUGS (2)
  1. REVLIMID [Suspect]
     Route: 048
     Dates: start: 20090501
  2. PANCREATIC ENZYME REPLACEMENT [Concomitant]
     Indication: DRUG USE FOR UNKNOWN INDICATION
     Route: 065

REACTIONS (5)
  - ABDOMINAL SEPSIS [None]
  - BRONCHOPNEUMONIA [None]
  - PANCREATIC ABSCESS [None]
  - PANCREATITIS ACUTE [None]
  - PYODERMA [None]
